FAERS Safety Report 4616011-7 (Version None)
Quarter: 2005Q1

REPORT INFORMATION
  Report Type: 
  Country: None (occurrence: None)
  Receive Date: 20050318
  Receipt Date: 20050314
  Transmission Date: 20050727
  Serious: Yes (Other)
  Sender: FDA-Public Use
  Company Number: 20050005USST

PATIENT
  Age: 61 Year
  Sex: Female

DRUGS (5)
  1. NATULAN (PROCARBAZINE HYDROCHLORIDE) [Suspect]
     Indication: MIXED OLIGO-ASTROCYTOMA
     Dates: start: 20040727, end: 20040824
  2. CCNU + VINCRISTINE [Suspect]
  3. TEGRETOL [Concomitant]
  4. CCNU [Concomitant]
  5. VINCRISTINE [Concomitant]

REACTIONS (4)
  - ASTHENIA [None]
  - DRUG TOXICITY [None]
  - NEPHRITIS INTERSTITIAL [None]
  - UNEVALUABLE EVENT [None]
